FAERS Safety Report 11072059 (Version 1)
Quarter: 2015Q2

REPORT INFORMATION
  Report Type: Report from Study
  Country: US (occurrence: US)
  Receive Date: 20150428
  Receipt Date: 20150428
  Transmission Date: 20150821
  Serious: Yes (Hospitalization)
  Sender: FDA-Public Use
  Company Number: US-ASTRAZENECA-2015SE36737

PATIENT
  Age: 20 Year
  Sex: Male

DRUGS (2)
  1. MEROPENEM. [Suspect]
     Active Substance: MEROPENEM
     Indication: WOUND INFECTION
     Dosage: SIX MONTHS PRIOR TO CRE RECOVERY
     Route: 042
  2. MEROPENEM. [Suspect]
     Active Substance: MEROPENEM
     Indication: KLEBSIELLA INFECTION
     Dosage: SIX MONTHS PRIOR TO CRE RECOVERY
     Route: 042

REACTIONS (1)
  - Drug resistance [Unknown]
